FAERS Safety Report 7434939-X (Version None)
Quarter: 2011Q2

REPORT INFORMATION
  Report Type: 
  Country: None (occurrence: None)
  Receive Date: 20110425
  Receipt Date: 20110415
  Transmission Date: 20111010
  Serious: Yes (Hospitalization)
  Sender: FDA-Public Use
  Company Number: FR-ASTRAZENECA-2010SE30562

PATIENT
  Age: 31339 Day
  Sex: Female

DRUGS (3)
  1. NEXIUM [Suspect]
     Indication: PROPHYLAXIS AGAINST GASTROINTESTINAL ULCER
     Route: 042
     Dates: start: 20100607, end: 20100611
  2. NORSET [Suspect]
     Route: 048
     Dates: start: 20100611, end: 20100621
  3. LOVENOX [Suspect]
     Indication: PROPHYLAXIS
     Route: 065
     Dates: start: 20100607

REACTIONS (3)
  - THROMBOCYTOPENIA [None]
  - LYMPHOPENIA [None]
  - ANAEMIA [None]
